FAERS Safety Report 4555387-6 (Version None)
Quarter: 2005Q1

REPORT INFORMATION
  Report Type: 
  Country: None (occurrence: None)
  Receive Date: 20050118
  Receipt Date: 20050118
  Transmission Date: 20050727
  Serious: Yes (Life-Threatening, Hospitalization)
  Sender: FDA-Public Use
  Company Number: None

PATIENT
  Age: 58 Year
  Sex: Female
  Weight: 96 kg

DRUGS (1)
  1. ASPARAGINASE -ELSPAR- 10, 000 MERCK [Suspect]
     Indication: ACUTE LYMPHOCYTIC LEUKAEMIA
     Dosage: 17,000 DAILY IV
     Route: 042
     Dates: start: 20041210, end: 20041216

REACTIONS (2)
  - DYSPNOEA [None]
  - PULMONARY EMBOLISM [None]
